FAERS Safety Report 16948862 (Version 1)
Quarter: 2019Q4

REPORT INFORMATION
  Report Type: Spontaneous
  Country: US (occurrence: US)
  Receive Date: 20191023
  Receipt Date: 20191023
  Transmission Date: 20200122
  Serious: No
  Sender: FDA-Public Use
  Company Number: US-PURDUE-USA-2019-0146950

PATIENT
  Age: 47 Year
  Sex: Male
  Weight: 99.77 kg

DRUGS (4)
  1. OXYCONTIN [Suspect]
     Active Substance: OXYCODONE HYDROCHLORIDE
     Indication: NEURALGIA
     Dosage: UNK
     Route: 048
     Dates: start: 201204
  2. PREDNISONE. [Suspect]
     Active Substance: PREDNISONE
     Indication: NEURALGIA
     Dosage: UNK
     Route: 048
     Dates: start: 201204
  3. FENTANYL. [Suspect]
     Active Substance: FENTANYL
     Indication: NEURALGIA
     Dosage: UNK
     Route: 065
     Dates: start: 201204
  4. NAPROXEN. [Suspect]
     Active Substance: NAPROXEN
     Indication: NEURALGIA
     Dosage: UNK
     Route: 048
     Dates: start: 201204

REACTIONS (2)
  - Memory impairment [Unknown]
  - Unevaluable event [Unknown]

NARRATIVE: CASE EVENT DATE: 201204
